FAERS Safety Report 21027585 (Version 1)
Quarter: 2022Q2

REPORT INFORMATION
  Report Type: Spontaneous
  Country: US (occurrence: US)
  Receive Date: 20220630
  Receipt Date: 20220630
  Transmission Date: 20220721
  Serious: No
  Sender: FDA-Public Use
  Company Number: US-MYLANLABS-2022M1048124

PATIENT
  Age: 33 Year
  Sex: Female

DRUGS (1)
  1. PROCTOFOAM HC [Suspect]
     Active Substance: HYDROCORTISONE ACETATE\PRAMOXINE HYDROCHLORIDE
     Indication: Haemorrhoids
     Dosage: 1 PERCENT, PRN 5X IF NEEDED
     Route: 054
     Dates: start: 20220621

REACTIONS (2)
  - Maternal exposure during pregnancy [Unknown]
  - Product quality issue [Unknown]

NARRATIVE: CASE EVENT DATE: 20220621
